FAERS Safety Report 6901649-4 (Version None)
Quarter: 2010Q3

REPORT INFORMATION
  Report Type: 
  Country: None (occurrence: None)
  Receive Date: 20100803
  Receipt Date: 20080225
  Transmission Date: 20110219
  Serious: No
  Sender: FDA-Public Use
  Company Number: US-PFIZER INC-2008017553

PATIENT
  Sex: Male

DRUGS (10)
  1. LYRICA [Suspect]
     Indication: NEURALGIA
  2. LYRICA [Suspect]
     Indication: SLEEP DISORDER
  3. LYRICA [Suspect]
     Indication: FIBROMYALGIA
  4. LYRICA [Suspect]
     Indication: CONVULSION
  5. MS CONTIN [Concomitant]
  6. MORPHINE [Concomitant]
  7. KLONOPIN [Concomitant]
  8. ACETYLSALICYLIC ACID SRT [Concomitant]
  9. DRUG, UNSPECIFIED [Concomitant]
  10. PHENOBARBITAL [Concomitant]

REACTIONS (1)
  - SOMNOLENCE [None]
